FAERS Safety Report 13103204 (Version 1)
Quarter: 2017Q1

REPORT INFORMATION
  Report Type: Spontaneous
  Country: US (occurrence: US)
  Receive Date: 20170110
  Receipt Date: 20170110
  Transmission Date: 20170428
  Serious: Yes (Death)
  Sender: FDA-Public Use
  Company Number: US-INSYS THERAPEUTICS, INC-INS201612-000906

PATIENT
  Age: 65 Year
  Sex: Male

DRUGS (8)
  1. HEROIN [Suspect]
     Active Substance: DIACETYLMORPHINE
     Route: 065
  2. FENTANYL. [Suspect]
     Active Substance: FENTANYL
     Route: 065
  3. MORPHINE (EXTENDED RELEASE) [Suspect]
     Active Substance: MORPHINE
     Indication: DRUG ABUSE
  4. MARIJUANA [Suspect]
     Active Substance: CANNABIS SATIVA SUBSP. INDICA TOP
     Indication: DRUG ABUSE
  5. HEROIN [Suspect]
     Active Substance: DIACETYLMORPHINE
     Indication: DRUG ABUSE
  6. MORPHINE (EXTENDED RELEASE) [Suspect]
     Active Substance: MORPHINE
     Route: 065
  7. FENTANYL. [Suspect]
     Active Substance: FENTANYL
     Indication: DRUG ABUSE
  8. MARIJUANA [Suspect]
     Active Substance: CANNABIS SATIVA SUBSP. INDICA TOP
     Route: 065

REACTIONS (2)
  - Drug abuse [Fatal]
  - Toxicity to various agents [Fatal]
